FAERS Safety Report 6374413-5 (Version None)
Quarter: 2009Q3

REPORT INFORMATION
  Report Type: 
  Country: None (occurrence: None)
  Receive Date: 20090921
  Receipt Date: 20090909
  Transmission Date: 20100115
  Serious: Yes (Other)
  Sender: FDA-Public Use
  Company Number: CHPA2009US18617

PATIENT
  Age: 70 Year
  Sex: Female
  Weight: 54.4 kg

DRUGS (1)
  1. EXCEDRIN (MIGRAINE) [Suspect]
     Indication: HEADACHE
     Dosage: 2 DF, QD, PRN, ORAL
     Route: 048

REACTIONS (3)
  - GASTRIC ULCER [None]
  - IMPAIRED HEALING [None]
  - ULCER [None]
